FAERS Safety Report 8146192-2 (Version None)
Quarter: 2012Q1

REPORT INFORMATION
  Report Type: 
  Country: None (occurrence: None)
  Receive Date: 20120217
  Receipt Date: 20110302
  Transmission Date: 20120608
  Serious: No
  Sender: FDA-Public Use
  Company Number: US-ABBOTT-11P-163-0708435-00

PATIENT
  Sex: Male
  Weight: 106.69 kg

DRUGS (3)
  1. GLAUCOMA EYE DROPS [Concomitant]
     Indication: GLAUCOMA
     Route: 047
  2. SIMCOR [Suspect]
     Indication: HIGH DENSITY LIPOPROTEIN DECREASED
     Dosage: 500/20 MG AT BEDTIME
     Dates: start: 20110301
  3. GLAUCOMA EYE DROPS [Concomitant]
     Route: 047

REACTIONS (2)
  - NASAL CONGESTION [None]
  - FEELING ABNORMAL [None]
